FAERS Safety Report 6439018-6 (Version None)
Quarter: 2009Q4

REPORT INFORMATION
  Report Type: 
  Country: None (occurrence: None)
  Receive Date: 20091113
  Receipt Date: 20091103
  Transmission Date: 20100525
  Serious: Yes (Other)
  Sender: FDA-Public Use
  Company Number: GR-JNJFOC-20091101249

PATIENT
  Age: 49 Year
  Sex: Female

DRUGS (2)
  1. INFLIXIMAB [Suspect]
     Indication: PSORIATIC ARTHROPATHY
     Route: 042
  2. PREDNISOLONE [Concomitant]
     Indication: PSORIATIC ARTHROPATHY

REACTIONS (1)
  - PULMONARY TUBERCULOSIS [None]
